FAERS Safety Report 20803664 (Version 1)
Quarter: 2022Q2

REPORT INFORMATION
  Report Type: Spontaneous
  Country: US (occurrence: US)
  Receive Date: 20220509
  Receipt Date: 20220509
  Transmission Date: 20220721
  Serious: No
  Sender: FDA-Public Use
  Company Number: US-ELI_LILLY_AND_COMPANY-US202205002450

PATIENT
  Sex: Male

DRUGS (4)
  1. TADALAFIL [Suspect]
     Active Substance: TADALAFIL
     Indication: Erectile dysfunction
     Dosage: 5 MG, DAILY
     Route: 048
  2. TADALAFIL [Suspect]
     Active Substance: TADALAFIL
     Indication: Benign prostatic hyperplasia
  3. CIALIS [Suspect]
     Active Substance: TADALAFIL
     Indication: Erectile dysfunction
     Dosage: 5 MG, DAILY
     Route: 048
  4. CIALIS [Suspect]
     Active Substance: TADALAFIL
     Indication: Benign prostatic hyperplasia

REACTIONS (1)
  - Drug ineffective [Recovered/Resolved]
